FAERS Safety Report 7108251-2 (Version None)
Quarter: 2010Q4

REPORT INFORMATION
  Report Type: 
  Country: None (occurrence: None)
  Receive Date: 20101117
  Receipt Date: 20101110
  Transmission Date: 20110411
  Serious: Yes (Hospitalization)
  Sender: FDA-Public Use
  Company Number: US-US-EMD SERONO, INC.-238486K09USA

PATIENT
  Sex: Female

DRUGS (3)
  1. REBIF [Suspect]
     Indication: MULTIPLE SCLEROSIS
     Route: 058
     Dates: start: 20071221, end: 20090101
  2. REBIF [Suspect]
     Dates: start: 20100101
  3. AVONEX [Concomitant]
     Dates: start: 20100101

REACTIONS (3)
  - HEADACHE [None]
  - INJECTION SITE REACTION [None]
  - RELAPSING-REMITTING MULTIPLE SCLEROSIS [None]
